FAERS Safety Report 4988375-6 (Version None)
Quarter: 2006Q2

REPORT INFORMATION
  Report Type: 
  Country: None (occurrence: None)
  Receive Date: 20060502
  Receipt Date: 20060420
  Transmission Date: 20061013
  Serious: Yes (Life-Threatening, Hospitalization)
  Sender: FDA-Public Use
  Company Number: GB-JNJFOC-20060404692

PATIENT
  Sex: Female
  Weight: 69.4 kg

DRUGS (13)
  1. BLINDED; GALANTAMINE HBR [Suspect]
     Route: 048
  2. BLINDED; GALANTAMINE HBR [Suspect]
     Indication: DEMENTIA
     Route: 048
  3. RISPERIDONE [Suspect]
     Indication: AGITATION
     Route: 048
  4. RISPERIDONE [Suspect]
     Route: 048
     Dates: start: 20060313, end: 20060405
  5. RAMIPRIL [Concomitant]
     Indication: HYPERTENSION
  6. ASPIRIN [Concomitant]
     Indication: CARDIOVASCULAR EVENT PROPHYLAXIS
  7. CLOMIPRAMINE HCL [Concomitant]
     Indication: ANTIDEPRESSANT THERAPY
     Route: 048
  8. FUROSEMIDE [Concomitant]
     Indication: HYPERTENSION
     Route: 048
  9. ATORVASTATIN CALCIUM [Concomitant]
     Route: 048
  10. LACTULOSE [Concomitant]
     Indication: CONSTIPATION
  11. SENNA [Concomitant]
     Indication: CONSTIPATION
  12. CO-CODEMOL [Concomitant]
  13. CO-CODEMOL [Concomitant]
     Indication: PAIN

REACTIONS (3)
  - CONFUSIONAL STATE [None]
  - DEMENTIA [None]
  - GENERAL PHYSICAL HEALTH DETERIORATION [None]
